FAERS Safety Report 14634642 (Version 1)
Quarter: 2018Q1

REPORT INFORMATION
  Report Type: Spontaneous
  Country: US (occurrence: US)
  Receive Date: 20180314
  Receipt Date: 20180314
  Transmission Date: 20180509
  Serious: No
  Sender: FDA-Public Use
  Company Number: US-PFIZER INC-2018101482

PATIENT
  Sex: Female

DRUGS (2)
  1. BENADRYL ALLERGY [Suspect]
     Active Substance: DIPHENHYDRAMINE HYDROCHLORIDE
     Dosage: UNK
  2. METOPROLOL TARTRATE. [Suspect]
     Active Substance: METOPROLOL TARTRATE
     Dosage: UNK

REACTIONS (9)
  - Product selection error [Unknown]
  - Feeling abnormal [Unknown]
  - Drug dose omission [Unknown]
  - Somnolence [Unknown]
  - Anxiety [Unknown]
  - Blood pressure increased [Unknown]
  - Formication [Unknown]
  - Rebound effect [Unknown]
  - Expired product administered [Unknown]
